FAERS Safety Report 14108168 (Version 5)
Quarter: 2018Q1

REPORT INFORMATION
  Report Type: Report from Study
  Country: US (occurrence: US)
  Receive Date: 20171019
  Receipt Date: 20180326
  Transmission Date: 20180508
  Serious: Yes (Hospitalization, Other)
  Sender: FDA-Public Use
  Company Number: US-GILEAD-2017-0299426

PATIENT
  Age: 53 Year
  Sex: Female

DRUGS (20)
  1. METFORMIN [Concomitant]
     Active Substance: METFORMIN HYDROCHLORIDE
  2. VENTOLIN [Concomitant]
     Active Substance: ALBUTEROL SULFATE
  3. SIMVASTATIN. [Concomitant]
     Active Substance: SIMVASTATIN
  4. METOLAZONE. [Concomitant]
     Active Substance: METOLAZONE
  5. AMBRISENTAN [Suspect]
     Active Substance: AMBRISENTAN
     Dosage: 5 MG, QD
     Route: 048
     Dates: start: 201403
  6. GLIPIZIDE. [Concomitant]
     Active Substance: GLIPIZIDE
  7. DULERA [Concomitant]
     Active Substance: FORMOTEROL FUMARATE DIHYDRATE\MOMETASONE FUROATE
  8. LUPRON [Concomitant]
     Active Substance: LEUPROLIDE ACETATE
  9. ZOLPIDEM [Concomitant]
     Active Substance: ZOLPIDEM\ZOLPIDEM TARTRATE
  10. MAGNESIUM OXIDE. [Concomitant]
     Active Substance: MAGNESIUM OXIDE
  11. FUROSEMIDE. [Concomitant]
     Active Substance: FUROSEMIDE
  12. SILDENAFIL. [Concomitant]
     Active Substance: SILDENAFIL
  13. ONDANSETRON [Concomitant]
     Active Substance: ONDANSETRON
  14. OXYCODONE W/APAP [Concomitant]
     Active Substance: ACETAMINOPHEN\OXYCODONE HYDROCHLORIDE
  15. HYDROMORPHONE [Concomitant]
     Active Substance: HYDROMORPHONE
  16. OMEPRAZOLE. [Concomitant]
     Active Substance: OMEPRAZOLE
  17. METOCLOPRAMIDE. [Concomitant]
     Active Substance: METOCLOPRAMIDE
  18. AMBRISENTAN [Suspect]
     Active Substance: AMBRISENTAN
     Indication: PULMONARY ARTERIAL HYPERTENSION
     Dosage: 10 MG, QD
     Route: 048
     Dates: start: 20140228
  19. WARFARIN [Concomitant]
     Active Substance: WARFARIN
  20. TREPROSTINIL [Concomitant]
     Active Substance: TREPROSTINIL

REACTIONS (16)
  - Cholecystitis [Unknown]
  - Asthenia [Unknown]
  - Oesophageal spasm [Unknown]
  - Hypokalaemia [Unknown]
  - Hypokalaemia [Unknown]
  - Bile duct stone [Unknown]
  - Acute respiratory failure [Unknown]
  - Pericardial effusion [Unknown]
  - Diarrhoea [Unknown]
  - Palpitations [Unknown]
  - Pneumonia [Unknown]
  - Chest pain [Unknown]
  - Hepatic congestion [Unknown]
  - Headache [Unknown]
  - Acute kidney injury [Unknown]
  - Abdominal pain upper [Unknown]

NARRATIVE: CASE EVENT DATE: 20171009
